FAERS Safety Report 11880065 (Version 1)
Quarter: 2015Q4

REPORT INFORMATION
  Report Type: Other
  Country: FR (occurrence: FR)
  Receive Date: 20151230
  Receipt Date: 20151230
  Transmission Date: 20160305
  Serious: Yes (Hospitalization)
  Sender: FDA-Public Use
  Company Number: FR-MYLANLABS-2015M1046872

PATIENT

DRUGS (3)
  1. CYTARABINE KABI [Suspect]
     Active Substance: CYTARABINE
     Indication: ACUTE LYMPHOCYTIC LEUKAEMIA
     Dosage: 40 MG, QD
     Route: 037
     Dates: start: 20151201, end: 20151201
  2. HYDROCORTANCYL /00016201/ [Suspect]
     Active Substance: PREDNISONE
     Indication: ACUTE LYMPHOCYTIC LEUKAEMIA
     Dosage: 50 MG, QD
     Route: 037
     Dates: start: 20151201
  3. METHOTREXATE (METHOTREXATE SODIUM) [Suspect]
     Active Substance: METHOTREXATE SODIUM
     Indication: ACUTE LYMPHOCYTIC LEUKAEMIA
     Dosage: 15 MG, QD
     Route: 037
     Dates: start: 20151201

REACTIONS (7)
  - Areflexia [Recovering/Resolving]
  - Korsakoff^s syndrome [Recovering/Resolving]
  - Cerebellar syndrome [Recovering/Resolving]
  - Ocular hypertension [Recovering/Resolving]
  - Nystagmus [Recovering/Resolving]
  - Diplopia [Recovering/Resolving]
  - Cataract cortical [Recovered/Resolved]

NARRATIVE: CASE EVENT DATE: 20151201
